FAERS Safety Report 10126180 (Version 1)
Quarter: 2014Q2

REPORT INFORMATION
  Report Type: Spontaneous
  Country: US (occurrence: US)
  Receive Date: 20140427
  Receipt Date: 20140427
  Transmission Date: 20141212
  Serious: No
  Sender: FDA-Public Use
  Company Number: US-009507513-1404USA013093

PATIENT
  Age: 25 Year
  Sex: Female

DRUGS (1)
  1. IMPLANON [Suspect]
     Indication: CONTRACEPTION
     Dosage: 68MG ONE ROD INSERTED, EVERY THREE YEARS
     Route: 059
     Dates: start: 20110224

REACTIONS (3)
  - Unintended pregnancy [Unknown]
  - Weight increased [Unknown]
  - Incorrect drug administration duration [Unknown]
